FAERS Safety Report 21839584 (Version 1)
Quarter: 2023Q1

REPORT INFORMATION
  Report Type: Spontaneous
  Country: CN (occurrence: CN)
  Receive Date: 20230109
  Receipt Date: 20230109
  Transmission Date: 20230418
  Serious: Yes (Hospitalization)
  Sender: FDA-Public Use
  Company Number: CN-PFIZER INC-PV202300002811

PATIENT
  Age: 74 Year
  Sex: Male
  Weight: 53 kg

DRUGS (3)
  1. INLYTA [Suspect]
     Active Substance: AXITINIB
     Indication: Renal cancer
     Dosage: 5 MG, 2X/DAY
     Route: 041
     Dates: start: 20220713, end: 20221011
  2. KEYTRUDA [Suspect]
     Active Substance: PEMBROLIZUMAB
     Indication: Renal cancer
     Dosage: 200 MG, EVERY 3 WEEKS(21 DAYS)
     Route: 041
     Dates: start: 20220713, end: 20220801
  3. AVASTIN [Concomitant]
     Active Substance: BEVACIZUMAB
     Indication: Pericardial effusion
     Dosage: 300 MG, EVERY 2 WEEKS(14 DAYS)
     Dates: start: 20220713, end: 20220729

REACTIONS (3)
  - Interstitial lung disease [Unknown]
  - Hepatic function abnormal [Recovered/Resolved]
  - Off label use [Unknown]

NARRATIVE: CASE EVENT DATE: 20220713
